FAERS Safety Report 24236080 (Version 1)
Quarter: 2024Q3

REPORT INFORMATION
  Report Type: Report from Study
  Country: US (occurrence: None)
  Receive Date: 20240822
  Receipt Date: 20240822
  Transmission Date: 20241016
  Serious: Yes (Hospitalization, Other)
  Sender: ASTRAZENECA
  Company Number: 2022A321846

PATIENT
  Sex: Female

DRUGS (3)
  1. CALQUENCE [Suspect]
     Active Substance: ACALABRUTINIB
     Indication: B-cell lymphoma
     Route: 048
  2. CALQUENCE [Suspect]
     Active Substance: ACALABRUTINIB
     Indication: B-cell small lymphocytic lymphoma
     Route: 048
  3. OZEMPIC [Concomitant]
     Active Substance: SEMAGLUTIDE
     Dosage: 0.25MG INJECTION 1X A WEEK,

REACTIONS (8)
  - Myocardial infarction [Unknown]
  - Pleural effusion [Unknown]
  - Atrial fibrillation [Unknown]
  - Pneumonia [Unknown]
  - Malaise [Unknown]
  - Head injury [Unknown]
  - Anaemia [Unknown]
  - COVID-19 [Unknown]
